FAERS Safety Report 22735826 (Version 2)
Quarter: 2023Q4

REPORT INFORMATION
  Report Type: Spontaneous
  Country: US (occurrence: US)
  Receive Date: 20230721
  Receipt Date: 20231005
  Transmission Date: 20240110
  Serious: No
  Sender: FDA-Public Use
  Company Number: US-SA-SAC20230719000552

PATIENT
  Age: 47 Year
  Sex: Female

DRUGS (1)
  1. DUPIXENT [Suspect]
     Active Substance: DUPILUMAB
     Indication: Dermatitis atopic
     Dosage: 300 MG, FREQUENCY- OTHER
     Route: 058

REACTIONS (8)
  - Conjunctivitis [Unknown]
  - Eye pain [Unknown]
  - Eyelid thickening [Unknown]
  - Ocular hyperaemia [Unknown]
  - Visual impairment [Unknown]
  - Foreign body sensation in eyes [Unknown]
  - Blister [Unknown]
  - Eczema [Unknown]

NARRATIVE: CASE EVENT DATE: 20230906
